FAERS Safety Report 8816681 (Version 1)
Quarter: 2012Q4

REPORT INFORMATION
  Report Type: Spontaneous
  Country: US (occurrence: None)
  Receive Date: 20120928
  Receipt Date: 20120928
  Transmission Date: 20130627
  Serious: Yes (Other)
  Sender: FDA-Public Use
  Company Number: 2012P1058935

PATIENT

DRUGS (1)
  1. NICARDIPINE [Suspect]
     Indication: BLOOD PRESSURE SYSTOLIC INCREASED
     Route: 042

REACTIONS (1)
  - Renal failure acute [None]
